FAERS Safety Report 9371595 (Version 1)
Quarter: 2013Q2

REPORT INFORMATION
  Report Type: Spontaneous
  Country: JP (occurrence: JP)
  Receive Date: 20130627
  Receipt Date: 20130627
  Transmission Date: 20140414
  Serious: Yes (Other)
  Sender: FDA-Public Use
  Company Number: PHHY2013JP063439

PATIENT
  Age: 71 Year
  Sex: Male

DRUGS (3)
  1. NILOTINIB [Suspect]
     Indication: CHRONIC MYELOID LEUKAEMIA
     Dosage: 400 MG, DAILY
     Route: 048
     Dates: start: 200909
  2. NILOTINIB [Suspect]
     Dosage: 200 MG, DAILY
     Route: 048
  3. NILOTINIB [Suspect]
     Dosage: 150 MG, DAILY
     Route: 048

REACTIONS (5)
  - Colon cancer [Unknown]
  - Second primary malignancy [Unknown]
  - Chronic myeloid leukaemia transformation [Unknown]
  - Anaemia [Unknown]
  - Platelet count decreased [Unknown]
